FAERS Safety Report 6096065-4 (Version None)
Quarter: 2009Q1

REPORT INFORMATION
  Report Type: 
  Country: None (occurrence: None)
  Receive Date: 20090227
  Receipt Date: 20081006
  Transmission Date: 20090719
  Serious: No
  Sender: FDA-Public Use
  Company Number: A0744092A

PATIENT
  Age: 49 Year
  Sex: Male

DRUGS (2)
  1. LAMICTAL [Suspect]
     Dosage: 100MG PER DAY
     Route: 048
     Dates: start: 20060328, end: 20080821
  2. NAMENDA [Concomitant]
     Dosage: 10MG TWICE PER DAY
     Route: 048

REACTIONS (1)
  - RASH [None]
